FAERS Safety Report 5209535-5 (Version None)
Quarter: 2007Q1

REPORT INFORMATION
  Report Type: 
  Country: None (occurrence: None)
  Receive Date: 20070111
  Receipt Date: 20070108
  Transmission Date: 20070707
  Serious: Yes (Other)
  Sender: FDA-Public Use
  Company Number: 229534

PATIENT
  Age: 52 Year
  Sex: Male

DRUGS (5)
  1. RITUXAN [Suspect]
     Indication: NON-HODGKIN'S LYMPHOMA
     Dosage: 375 MG, INTRAVENOUS
     Route: 042
     Dates: start: 20060606, end: 20060705
  2. FLUDARABINE PHOSPHATE [Suspect]
     Indication: NON-HODGKIN'S LYMPHOMA
     Dosage: 70 MG, ORAL
     Route: 048
     Dates: start: 20060606, end: 20060709
  3. LOXONIN (LOXOPROFEN SODIUM) [Concomitant]
  4. TAVEGYL (CLEMASTINE FUMARATE) [Concomitant]
  5. SULFAMETHOXAZOLE + TRIMETHOPRIM [Concomitant]

REACTIONS (1)
  - HAEMOLYTIC ANAEMIA [None]
